FAERS Safety Report 5871452-5 (Version None)
Quarter: 2008Q3

REPORT INFORMATION
  Report Type: 
  Country: None (occurrence: None)
  Receive Date: 20080905
  Receipt Date: 20080131
  Transmission Date: 20090109
  Serious: No
  Sender: FDA-Public Use
  Company Number: A0706648A

PATIENT
  Age: 55 Year
  Sex: Female

DRUGS (19)
  1. REQUIP [Suspect]
     Indication: RESTLESS LEGS SYNDROME
     Dosage: 1MG PER DAY
     Route: 048
     Dates: start: 20080123, end: 20080129
  2. NEXIUM [Concomitant]
  3. LASIX [Concomitant]
  4. DIOVAN [Concomitant]
  5. PAROXETINE HCL [Concomitant]
  6. GLUCOTROL XL [Concomitant]
  7. POTASSIUM CHLORIDE [Concomitant]
  8. WELCHOL [Concomitant]
  9. NAPROXEN [Concomitant]
  10. HYDROCODONE BITARTRATE [Concomitant]
  11. JANUVIA [Concomitant]
  12. AMLODIPINE [Concomitant]
  13. TRICOR [Concomitant]
  14. SINGULAIR [Concomitant]
  15. ADVAIR DISKUS 100/50 [Concomitant]
  16. BYETTA [Concomitant]
  17. LEVEMIR [Concomitant]
  18. REQUIP [Concomitant]
  19. LYRICA [Concomitant]

REACTIONS (3)
  - DRUG INTERACTION [None]
  - THROAT IRRITATION [None]
  - VOMITING [None]
